FAERS Safety Report 7820005-8 (Version None)
Quarter: 2011Q4

REPORT INFORMATION
  Report Type: 
  Country: None (occurrence: None)
  Receive Date: 20111018
  Receipt Date: 20111014
  Transmission Date: 20120403
  Serious: Yes (Other)
  Sender: FDA-Public Use
  Company Number: US-PFIZER INC-2011186347

PATIENT
  Sex: Female
  Weight: 89.796 kg

DRUGS (2)
  1. LYRICA [Suspect]
     Indication: FIBROMYALGIA
     Dosage: 50MG X4/DAY AT BED TIME
     Route: 048
     Dates: start: 20110702, end: 20110701
  2. AMLODIPINE [Concomitant]
     Indication: HYPERTENSION
     Dosage: 5MG DAILY

REACTIONS (2)
  - AMNESIA [None]
  - MENTAL DISORDER [None]
